FAERS Safety Report 7910649-7 (Version None)
Quarter: 2011Q4

REPORT INFORMATION
  Report Type: 
  Country: None (occurrence: None)
  Receive Date: 20111111
  Receipt Date: 20111103
  Transmission Date: 20120403
  Serious: Yes (Hospitalization)
  Sender: FDA-Public Use
  Company Number: AT-ROCHE-1009295

PATIENT
  Age: 61 Year
  Sex: Male

DRUGS (4)
  1. AVASTIN [Suspect]
     Indication: BRAIN NEOPLASM MALIGNANT
     Route: 042
     Dates: start: 20100423, end: 20100609
  2. KEPPRA [Concomitant]
  3. IRINOTECAN HCL [Suspect]
     Indication: BRAIN NEOPLASM MALIGNANT
     Route: 042
     Dates: start: 20100423, end: 20100609
  4. FORTECORTIN [Concomitant]

REACTIONS (1)
  - LUMBAR VERTEBRAL FRACTURE [None]
